FAERS Safety Report 13466368 (Version 1)
Quarter: 2017Q2

REPORT INFORMATION
  Report Type: Spontaneous
  Country: US (occurrence: US)
  Receive Date: 20170420
  Receipt Date: 20170420
  Transmission Date: 20170830
  Serious: No
  Sender: FDA-Public Use
  Company Number: None

PATIENT
  Sex: Female

DRUGS (1)
  1. CAPECITABINE 500MG ACCORD [Suspect]
     Active Substance: CAPECITABINE
     Indication: BREAST CANCER
     Dosage: 2000MG EVERY MORNING AND 1500MG DAILY FOR 7 DAYS ON AND 7 DAYS OFF ORALLY
     Route: 048
     Dates: start: 20161026

REACTIONS (3)
  - Balance disorder [None]
  - Dissociation [None]
  - Memory impairment [None]
